FAERS Safety Report 25801541 (Version 1)
Quarter: 2025Q3

REPORT INFORMATION
  Report Type: Spontaneous
  Country: JP (occurrence: JP)
  Receive Date: 20250915
  Receipt Date: 20250915
  Transmission Date: 20251021
  Serious: Yes (Hospitalization, Other)
  Sender: TAKEDA
  Company Number: JP-teijin-202503967_TDN_P_1

PATIENT
  Age: 78 Year
  Sex: Male
  Weight: 65.8 kg

DRUGS (8)
  1. NESINA [Suspect]
     Active Substance: ALOGLIPTIN BENZOATE
     Indication: Type 2 diabetes mellitus
  2. SITAGLIPTIN PHOSPHATE [Suspect]
     Active Substance: SITAGLIPTIN PHOSPHATE
     Indication: Type 2 diabetes mellitus
  3. SITAGLIPTIN PHOSPHATE [Suspect]
     Active Substance: SITAGLIPTIN PHOSPHATE
  4. LINAGLIPTIN [Suspect]
     Active Substance: LINAGLIPTIN
     Indication: Type 2 diabetes mellitus
  5. TENELIGLIPTIN HYDROBROMIDE ANHYDROUS [Suspect]
     Active Substance: TENELIGLIPTIN HYDROBROMIDE ANHYDROUS
     Indication: Type 2 diabetes mellitus
  6. NIFEDIPINE [Concomitant]
     Active Substance: NIFEDIPINE
  7. TELMISARTAN [Concomitant]
     Active Substance: TELMISARTAN
  8. FUROSEMIDE [Concomitant]
     Active Substance: FUROSEMIDE

REACTIONS (2)
  - Immune-mediated renal disorder [Unknown]
  - Pemphigoid [Recovering/Resolving]
